FAERS Safety Report 21087767 (Version 1)
Quarter: 2022Q3

REPORT INFORMATION
  Report Type: Spontaneous
  Country: PT (occurrence: None)
  Receive Date: 20220715
  Receipt Date: 20220715
  Transmission Date: 20221026
  Serious: Yes (Other)
  Sender: FDA-Public Use
  Company Number: 2022A249368

PATIENT
  Age: 40 Year
  Sex: Female

DRUGS (2)
  1. TAMOXIFEN [Suspect]
     Active Substance: TAMOXIFEN
     Indication: Invasive ductal breast carcinoma
     Route: 048
     Dates: start: 2012, end: 201503
  2. FULVESTRANT [Suspect]
     Active Substance: FULVESTRANT
     Indication: Invasive ductal breast carcinoma
     Route: 042
     Dates: start: 201503, end: 201510

REACTIONS (3)
  - Malignant neoplasm progression [Unknown]
  - Metastases to lung [Unknown]
  - Metastases to bone [Unknown]

NARRATIVE: CASE EVENT DATE: 20150501
